FAERS Safety Report 10173067 (Version 1)
Quarter: 2014Q2

REPORT INFORMATION
  Report Type: Spontaneous
  Country: FR (occurrence: FR)
  Receive Date: 20140515
  Receipt Date: 20140515
  Transmission Date: 20141212
  Serious: Yes (Hospitalization)
  Sender: FDA-Public Use
  Company Number: FR-ROCHE-1401908

PATIENT
  Sex: Male

DRUGS (1)
  1. XOLAIR [Suspect]
     Indication: ASTHMA
     Route: 065

REACTIONS (10)
  - Asthma [Unknown]
  - Restlessness [Unknown]
  - Middle insomnia [Unknown]
  - Stress [Unknown]
  - Agitation [Unknown]
  - Anxiety [Unknown]
  - Fear [Unknown]
  - Cyanosis [Unknown]
  - Claustrophobia [Unknown]
  - Headache [Unknown]
